FAERS Safety Report 6111756-4 (Version None)
Quarter: 2009Q1

REPORT INFORMATION
  Report Type: 
  Country: None (occurrence: None)
  Receive Date: 20090311
  Receipt Date: 20090306
  Transmission Date: 20090719
  Serious: Yes (Death, Life-Threatening, Hospitalization, Other)
  Sender: FDA-Public Use
  Company Number: DE-ELI_LILLY_AND_COMPANY-DE200902001718

PATIENT
  Sex: Female
  Weight: 83 kg

DRUGS (6)
  1. ALIMTA [Suspect]
     Indication: LUNG NEOPLASM MALIGNANT
     Dosage: 500 MG/M2, UNKNOWN
     Route: 042
     Dates: start: 20080701
  2. CISPLATIN [Concomitant]
     Indication: LUNG NEOPLASM MALIGNANT
     Dosage: 75 MG/M2, UNKNOWN
     Route: 042
     Dates: start: 20080701
  3. LAFOL [Concomitant]
     Dosage: 0,4 MG/DL
     Route: 048
     Dates: start: 20080701
  4. VITAMIN B-12 [Concomitant]
     Dosage: 1 AMP
     Route: 065
  5. LANSOPRAZOL [Concomitant]
     Dosage: 30 MG, DAILY (1/D)
     Route: 048
     Dates: start: 20080701
  6. LEVOTHYROXINE SODIUM [Concomitant]
     Indication: HYPOTHYROIDISM
     Dosage: 95 MG, DAILY (1/D)
     Route: 048

REACTIONS (3)
  - HYPOALBUMINAEMIA [None]
  - MALIGNANT NEOPLASM PROGRESSION [None]
  - SHOCK [None]
